FAERS Safety Report 7834220-0 (Version None)
Quarter: 2011Q4

REPORT INFORMATION
  Report Type: 
  Country: None (occurrence: None)
  Receive Date: 20111024
  Receipt Date: 20111017
  Transmission Date: 20120403
  Serious: Yes (Other)
  Sender: FDA-Public Use
  Company Number: PHHY2011BR92330

PATIENT
  Sex: Female
  Weight: 84 kg

DRUGS (1)
  1. EXFORGE [Suspect]
     Indication: HYPERTENSION
     Dosage: 1 DF, IN MORNING (160/5 MG)
     Route: 048

REACTIONS (3)
  - HYPERTENSION [None]
  - BLOOD PRESSURE INADEQUATELY CONTROLLED [None]
  - EMOTIONAL DISORDER [None]
